FAERS Safety Report 10086313 (Version 1)
Quarter: 2014Q2

REPORT INFORMATION
  Report Type: Spontaneous
  Country: GB (occurrence: GB)
  Receive Date: 20140418
  Receipt Date: 20140418
  Transmission Date: 20141212
  Serious: Yes (Disabling)
  Sender: FDA-Public Use
  Company Number: GB-SA-2014SA043514

PATIENT
  Age: 61 Year
  Sex: Female
  Weight: 64.4 kg

DRUGS (3)
  1. INDAPAMIDE [Suspect]
     Indication: PRODUCT USED FOR UNKNOWN INDICATION
     Route: 065
     Dates: start: 20140121
  2. CO-CODAMOL [Concomitant]
     Dates: start: 20140106, end: 20140118
  3. HYDROXOCOBALAMIN [Concomitant]
     Dates: start: 20140108, end: 20140109

REACTIONS (1)
  - Tinnitus [Recovered/Resolved]
